FAERS Safety Report 5973069-0 (Version None)
Quarter: 2008Q4

REPORT INFORMATION
  Report Type: 
  Country: None (occurrence: None)
  Receive Date: 20081201
  Receipt Date: 20081118
  Transmission Date: 20090506
  Serious: Yes (Other)
  Sender: FDA-Public Use
  Company Number: ES-ELI_LILLY_AND_COMPANY-ES200811004718

PATIENT
  Age: 49 Year
  Sex: Male

DRUGS (1)
  1. PROZAC [Suspect]
     Indication: OBESITY
     Dosage: 20 MG, UNK
     Route: 048
     Dates: start: 20081008, end: 20081008

REACTIONS (4)
  - AGGRESSION [None]
  - FEAR [None]
  - MENTAL DISORDER [None]
  - SUICIDAL IDEATION [None]
